FAERS Safety Report 5717931-2 (Version None)
Quarter: 2008Q2

REPORT INFORMATION
  Report Type: 
  Country: None (occurrence: None)
  Receive Date: 20080425
  Receipt Date: 20080415
  Transmission Date: 20081010
  Serious: Yes (Other)
  Sender: FDA-Public Use
  Company Number: US-BAYER-200811484BCC

PATIENT
  Age: 38 Year
  Sex: Male
  Weight: 86 kg

DRUGS (6)
  1. ALEVE [Suspect]
     Indication: MYALGIA
     Dosage: TOTAL DAILY DOSE: 220 MG  UNIT DOSE: 220 MG
     Route: 048
     Dates: start: 20080414, end: 20080414
  2. CYCLOBENZAPRINE HCL [Concomitant]
  3. SYMBICORT [Concomitant]
  4. NASACORT AQ [Concomitant]
  5. BENADRYL [Concomitant]
  6. ASPIRIN [Concomitant]

REACTIONS (7)
  - ABDOMINAL PAIN UPPER [None]
  - BLOOD PRESSURE DECREASED [None]
  - DYSPNOEA [None]
  - HYPERSENSITIVITY [None]
  - NAUSEA [None]
  - RASH [None]
  - URTICARIA [None]
